FAERS Safety Report 9929070 (Version 1)
Quarter: 2014Q1

REPORT INFORMATION
  Report Type: Spontaneous
  Country: US (occurrence: US)
  Receive Date: 20140227
  Receipt Date: 20140227
  Transmission Date: 20141002
  Serious: Yes (Other)
  Sender: FDA-Public Use
  Company Number: US-TEVA-465344USA

PATIENT
  Age: 24 Year
  Sex: Female

DRUGS (8)
  1. METFORMIN [Suspect]
     Indication: POLYCYSTIC OVARIES
     Route: 065
  2. ETHINYLESTRADIOL [Suspect]
     Indication: POLYCYSTIC OVARIES
     Route: 065
  3. HYDROXYCHLOROQUINE [Concomitant]
     Route: 065
  4. LEVOTHYROXINE SODIUM [Concomitant]
     Route: 065
  5. GABAPENTIN [Concomitant]
     Route: 065
  6. CITALOPRAM [Concomitant]
     Route: 065
  7. RABEPRAZOLE [Concomitant]
     Route: 065
  8. SPIRONOLACTONE [Concomitant]
     Indication: POLYCYSTIC OVARIES
     Route: 065

REACTIONS (6)
  - Angioedema [Recovered/Resolved]
  - Gastrointestinal disorder [Unknown]
  - Depression [Recovered/Resolved]
  - Fatigue [Recovered/Resolved]
  - Headache [Recovered/Resolved]
  - Erythema marginatum [Recovered/Resolved]
